FAERS Safety Report 10479813 (Version 1)
Quarter: 2014Q3

REPORT INFORMATION
  Report Type: Spontaneous
  Country: US (occurrence: None)
  Receive Date: 20140925
  Receipt Date: 20140925
  Transmission Date: 20150326
  Serious: Yes (Disabling, Other)
  Sender: FDA-Public Use
  Company Number: 2014NUEUSA00382

PATIENT
  Age: 49 Year
  Sex: Male

DRUGS (4)
  1. BUSPAR (BUSPIRONE HYDROCHLORIDE) [Concomitant]
  2. TEGRETOL (CARBAMAZEPINE) [Concomitant]
  3. RISPERDAL [Suspect]
     Active Substance: RISPERIDONE
     Indication: PRODUCT USED FOR UNKNOWN INDICATION
  4. NUEDEXTA [Suspect]
     Active Substance: DEXTROMETHORPHAN HYDROBROMIDE\QUINIDINE SULFATE
     Indication: AFFECT LABILITY
     Dosage: 1 CAP, QD, ORAL
     Route: 048
     Dates: start: 20140904, end: 20140909

REACTIONS (2)
  - Drug interaction [None]
  - Activities of daily living impaired [None]

NARRATIVE: CASE EVENT DATE: 20140907
